FAERS Safety Report 4660565-1 (Version None)
Quarter: 2005Q2

REPORT INFORMATION
  Report Type: 
  Country: None (occurrence: None)
  Receive Date: 20050512
  Receipt Date: 20050504
  Transmission Date: 20051028
  Serious: Yes (Other)
  Sender: FDA-Public Use
  Company Number: US-ROCHE-404024

PATIENT

DRUGS (1)
  1. XELODA [Suspect]
     Indication: DRUG USE FOR UNKNOWN INDICATION
     Dosage: THE PATIENT HAD RECEIVED FOUR CYCLES OF CAPECITABINE.
     Route: 065

REACTIONS (5)
  - AMNESIA [None]
  - BLINDNESS [None]
  - CONVULSION [None]
  - COORDINATION ABNORMAL [None]
  - ENCEPHALOPATHY [None]
